FAERS Safety Report 17369058 (Version 1)
Quarter: 2020Q1

REPORT INFORMATION
  Report Type: Spontaneous
  Country: US (occurrence: US)
  Receive Date: 20200120
  Receipt Date: 20200120
  Transmission Date: 20200409
  Serious: Yes (Life-Threatening)
  Sender: FDA-Public Use
  Company Number: None

PATIENT
  Sex: Male

DRUGS (7)
  1. FOLIC ACID. [Concomitant]
     Active Substance: FOLIC ACID
  2. ENBREL [Suspect]
     Active Substance: ETANERCEPT
     Indication: PSORIASIS
     Route: 058
     Dates: start: 20190709
  3. ALEVE [Concomitant]
     Active Substance: NAPROXEN SODIUM
  4. LEFLUNOMIDE. [Concomitant]
     Active Substance: LEFLUNOMIDE
  5. LOSARTAN POT [Concomitant]
     Active Substance: LOSARTAN POTASSIUM
  6. WAL-ZYR (CETIRIZINE HYDROCHLORIDE) [Concomitant]
     Active Substance: CETIRIZINE HYDROCHLORIDE
  7. PERCOCET [Concomitant]
     Active Substance: ACETAMINOPHEN\OXYCODONE HYDROCHLORIDE

REACTIONS (2)
  - Myocardial infarction [None]
  - Therapy change [None]
